FAERS Safety Report 5704438-1 (Version None)
Quarter: 2008Q2

REPORT INFORMATION
  Report Type: 
  Country: None (occurrence: None)
  Receive Date: 20080414
  Receipt Date: 20080409
  Transmission Date: 20081010
  Serious: Yes (Other)
  Sender: FDA-Public Use
  Company Number: B0515994A

PATIENT
  Age: 60 Year
  Sex: Female

DRUGS (2)
  1. CLAMOXYL [Suspect]
     Indication: TOOTH EXTRACTION
     Dosage: 1UNIT SINGLE DOSE
     Route: 048
     Dates: start: 20070501
  2. ARTOTEC [Suspect]
     Indication: DRUG USE FOR UNKNOWN INDICATION
     Dosage: 1TAB PER DAY
     Dates: start: 20070501, end: 20070501

REACTIONS (4)
  - ERYTHEMA [None]
  - MALAISE [None]
  - PRURITUS [None]
  - URTICARIA [None]
